FAERS Safety Report 16768201 (Version 1)
Quarter: 2019Q3

REPORT INFORMATION
  Report Type: Report from Study
  Country: IT (occurrence: IT)
  Receive Date: 20190903
  Receipt Date: 20190903
  Transmission Date: 20191005
  Serious: Yes (Hospitalization)
  Sender: FDA-Public Use
  Company Number: IT-MYLANLABS-2019M1081822

PATIENT
  Age: 39 Year
  Sex: Male

DRUGS (3)
  1. AULIN [Suspect]
     Active Substance: NIMESULIDE
     Indication: BACK PAIN
     Dosage: 1 DOSAGE FORM, PRN
     Route: 048
     Dates: start: 20180817, end: 20180820
  2. TRAMADOL. [Suspect]
     Active Substance: TRAMADOL
     Indication: BACK PAIN
     Dosage: 1 DOSAGE FORM, PRN
     Dates: start: 20180817, end: 20180820
  3. IBUPROFEN. [Suspect]
     Active Substance: IBUPROFEN
     Indication: BACK PAIN
     Dosage: 1 DOSAGE FORM, PRN
     Route: 048
     Dates: start: 20180817, end: 20180820

REACTIONS (2)
  - Pancreatitis acute [Recovering/Resolving]
  - Hepatitis acute [Recovering/Resolving]

NARRATIVE: CASE EVENT DATE: 20180821
